FAERS Safety Report 6694901-1 (Version None)
Quarter: 2010Q2

REPORT INFORMATION
  Report Type: 
  Country: None (occurrence: None)
  Receive Date: 20100423
  Receipt Date: 20100414
  Transmission Date: 20101027
  Serious: Yes (Other)
  Sender: FDA-Public Use
  Company Number: US-JNJFOC-20100403826

PATIENT
  Sex: Male
  Weight: 72.58 kg

DRUGS (6)
  1. FENTANYL CITRATE [Suspect]
     Indication: BACK PAIN
     Route: 062
  2. FENTANYL CITRATE [Suspect]
     Route: 062
  3. BACLOFEN [Concomitant]
     Indication: MUSCLE SPASMS
     Route: 048
  4. RANITIDINE [Concomitant]
     Indication: ABDOMINAL DISCOMFORT
     Route: 048
  5. COUMADIN [Concomitant]
     Indication: THROMBOSIS
     Dosage: DOSE 5MG 3X WEKK ALTERNATE WITH 21/2MG 4X WEEK
     Route: 065
  6. OXYBUTYNIN CHLORIDE [Concomitant]
     Indication: BLADDER SPASM
     Route: 048

REACTIONS (6)
  - ANXIETY [None]
  - DEPRESSION [None]
  - DRUG DOSE OMISSION [None]
  - MUSCLE SPASMS [None]
  - WITHDRAWAL SYNDROME [None]
  - WRONG TECHNIQUE IN DRUG USAGE PROCESS [None]
